FAERS Safety Report 9382266 (Version 1)
Quarter: 2013Q3

REPORT INFORMATION
  Report Type: Spontaneous
  Country: US (occurrence: US)
  Receive Date: 20130703
  Receipt Date: 20130703
  Transmission Date: 20140515
  Serious: No
  Sender: FDA-Public Use
  Company Number: US-UPSHER-SMITH LABORATORIES, INC.-12001988

PATIENT
  Age: 65 Year
  Sex: Female

DRUGS (8)
  1. DIVIGEL [Suspect]
     Indication: HOT FLUSH
     Dosage: 1.5 MG, QD
     Route: 061
     Dates: start: 201205
  2. DIVIGEL [Suspect]
     Indication: ANXIETY
  3. DIVIGEL [Suspect]
     Indication: PALPITATIONS
  4. DIVIGEL [Suspect]
     Indication: FATIGUE
  5. LUMIGAN [Concomitant]
     Indication: GLAUCOMA
     Dosage: UNK
  6. REMERON [Concomitant]
     Indication: DEPRESSION
     Dosage: UNK
  7. ATIVAN [Concomitant]
     Dosage: UNK
  8. ACIPHEX [Concomitant]
     Indication: GASTROOESOPHAGEAL REFLUX DISEASE
     Dosage: UNK

REACTIONS (1)
  - Drug ineffective [Not Recovered/Not Resolved]
